FAERS Safety Report 25749521 (Version 1)
Quarter: 2025Q3

REPORT INFORMATION
  Report Type: Spontaneous
  Country: EU (occurrence: EU)
  Receive Date: 20250902
  Receipt Date: 20250902
  Transmission Date: 20251021
  Serious: Yes (Life-Threatening, Hospitalization)
  Sender: RANBAXY
  Company Number: EU-SUN PHARMACEUTICAL INDUSTRIES LTD-2025RR-524934

PATIENT
  Age: 76 Year
  Sex: Male
  Weight: 84 kg

DRUGS (5)
  1. CIPROFLOXACIN [Interacting]
     Active Substance: CIPROFLOXACIN
     Indication: Escherichia bacteraemia
     Dosage: 500 MILLIGRAM, BID
     Route: 048
     Dates: start: 20250501
  2. TOUJEO [Interacting]
     Active Substance: INSULIN GLARGINE
     Indication: Insulin-requiring type 2 diabetes mellitus
     Dosage: 58 INTERNATIONAL UNIT, DAILY
     Route: 058
     Dates: end: 20250502
  3. TOUJEO [Interacting]
     Active Substance: INSULIN GLARGINE
     Dosage: 52 INTERNATIONAL UNIT, DAILY
     Route: 065
     Dates: start: 20250502, end: 20250503
  4. ATENOLOL [Concomitant]
     Active Substance: ATENOLOL
     Indication: Hypertensive heart disease
     Dosage: 25 MILLIGRAM, DAILY
     Route: 048
  5. PANTOPRAZOLE [Concomitant]
     Active Substance: PANTOPRAZOLE
     Indication: Prophylaxis against gastrointestinal ulcer
     Dosage: 40 MILLIGRAM, BID
     Route: 048

REACTIONS (2)
  - Hypoglycaemia [Recovered/Resolved]
  - Drug interaction [Recovered/Resolved]

NARRATIVE: CASE EVENT DATE: 20250501
